FAERS Safety Report 6262621-3 (Version None)
Quarter: 2009Q3

REPORT INFORMATION
  Report Type: 
  Country: None (occurrence: None)
  Receive Date: 20090709
  Receipt Date: 20090629
  Transmission Date: 20100115
  Serious: Yes (Hospitalization)
  Sender: FDA-Public Use
  Company Number: PHHY2009PL26391

PATIENT
  Sex: Female
  Weight: 90 kg

DRUGS (7)
  1. SANDIMMUNE [Suspect]
     Indication: RHEUMATOID ARTHRITIS
     Dosage: 150 MG/24 H
     Route: 048
     Dates: start: 20070601, end: 20090420
  2. CONTROLOC [Concomitant]
  3. BISOCARD [Concomitant]
  4. TRITACE [Concomitant]
  5. METHYLPREDNISOLONE [Concomitant]
  6. HUMALOG [Concomitant]
  7. LIPANTHYL [Concomitant]

REACTIONS (2)
  - RENAL FAILURE [None]
  - URTICARIA [None]
